FAERS Safety Report 10779046 (Version 2)
Quarter: 2015Q1

REPORT INFORMATION
  Report Type: Report from Study
  Country: CA (occurrence: CA)
  Receive Date: 20150210
  Receipt Date: 20150310
  Transmission Date: 20150721
  Serious: Yes (Hospitalization, Other)
  Sender: FDA-Public Use
  Company Number: CA-ROCHE-1172601

PATIENT
  Age: 37 Year
  Sex: Female
  Weight: 90.8 kg

DRUGS (9)
  1. OMALIZUMAB [Suspect]
     Active Substance: OMALIZUMAB
     Indication: ASTHMA
     Route: 058
     Dates: start: 20060105
  2. OMALIZUMAB [Suspect]
     Active Substance: OMALIZUMAB
     Route: 058
     Dates: start: 20091207
  3. OMALIZUMAB [Suspect]
     Active Substance: OMALIZUMAB
     Route: 058
     Dates: start: 20091124
  4. SYMBICORT [Concomitant]
     Active Substance: BUDESONIDE\FORMOTEROL FUMARATE DIHYDRATE
     Indication: PRODUCT USED FOR UNKNOWN INDICATION
     Dosage: 8 PUFF, QD, DOSE=8 PUFF, DAILY DOSE=8 PUFF
     Route: 065
  5. OMALIZUMAB [Suspect]
     Active Substance: OMALIZUMAB
     Route: 058
     Dates: start: 20060830
  6. OMALIZUMAB [Suspect]
     Active Substance: OMALIZUMAB
     Route: 058
     Dates: start: 20141209
  7. PULMICORT TURBUHALER [Concomitant]
     Active Substance: BUDESONIDE
     Indication: PRODUCT USED FOR UNKNOWN INDICATION
  8. OXEZE [Concomitant]
     Indication: PRODUCT USED FOR UNKNOWN INDICATION
  9. OMALIZUMAB [Suspect]
     Active Substance: OMALIZUMAB
     Route: 058
     Dates: start: 20060105

REACTIONS (21)
  - Nasal congestion [Unknown]
  - Hyperhidrosis [Unknown]
  - Blood pressure diastolic increased [Unknown]
  - Insomnia [Unknown]
  - Bronchitis [Recovering/Resolving]
  - Influenza [Unknown]
  - Rhinorrhoea [Unknown]
  - Weight increased [Unknown]
  - Migraine [Unknown]
  - Rales [Unknown]
  - Cough [Unknown]
  - Breath sounds abnormal [Unknown]
  - Fall [Unknown]
  - Hypersensitivity [Unknown]
  - Sinus congestion [Unknown]
  - Back pain [Unknown]
  - Eye irritation [Unknown]
  - Breast pain [Unknown]
  - Body temperature decreased [Unknown]
  - Arthropathy [Unknown]
  - Asthma [Recovered/Resolved]

NARRATIVE: CASE EVENT DATE: 20060410
